FAERS Safety Report 5447878-0 (Version None)
Quarter: 2007Q3

REPORT INFORMATION
  Report Type: 
  Country: None (occurrence: None)
  Receive Date: 20070910
  Receipt Date: 20070827
  Transmission Date: 20080115
  Serious: Yes (Hospitalization, Other)
  Sender: FDA-Public Use
  Company Number: DE-SHR-DE-2007-032622

PATIENT
  Age: 45 Year
  Sex: Female

DRUGS (2)
  1. BETAFERON [Suspect]
     Dosage: 250 A?G, EVERY 2D
     Route: 058
  2. AZATHIOPRINE [Concomitant]
     Dosage: UNKNOWN

REACTIONS (1)
  - BASAL CELL CARCINOMA [None]
